FAERS Safety Report 9863457 (Version 2)
Quarter: 2014Q1

REPORT INFORMATION
  Report Type: Report from Study
  Country: TW (occurrence: TW)
  Receive Date: 20140203
  Receipt Date: 20140321
  Transmission Date: 20141002
  Serious: Yes (Hospitalization, Other)
  Sender: FDA-Public Use
  Company Number: PHHY2014TW012704

PATIENT
  Age: 84 Year
  Sex: Female
  Weight: 45 kg

DRUGS (57)
  1. AMN107 [Suspect]
     Indication: CHRONIC MYELOID LEUKAEMIA
     Dosage: 400 MG, UNK
     Dates: start: 20111123
  2. ACETYLSALICYLIC ACID [Concomitant]
     Indication: THROMBOSIS PROPHYLAXIS
     Dates: start: 20111212
  3. BETAMETHASONE [Concomitant]
     Indication: SEBORRHOEIC DERMATITIS
     Dates: start: 20120118
  4. BROWN MIXTURE [Concomitant]
     Indication: COUGH
     Dates: start: 20121202, end: 20121212
  5. BUSCOPAN [Concomitant]
     Indication: GASTROENTERITIS
     Dates: start: 20121223, end: 20121223
  6. CEFLEXIN [Concomitant]
     Indication: EYELID DISORDER
     Dates: start: 20120620, end: 20120623
  7. CHLORPHENIRAMIN [Concomitant]
     Indication: ALLERGY PROPHYLAXIS
     Dates: start: 20111212, end: 20111212
  8. CHLORPHENIRAMIN [Concomitant]
     Indication: PREMEDICATION
     Dates: start: 20120118, end: 20120118
  9. CHLORPHENIRAMIN [Concomitant]
     Dates: start: 20120215, end: 20120215
  10. CHLORPHENIRAMIN [Concomitant]
     Dates: start: 20120411, end: 20120411
  11. CHLORPHENIRAMIN [Concomitant]
     Dates: start: 20120530, end: 20120530
  12. CHLORPHENIRAMIN [Concomitant]
     Dates: start: 20120718, end: 20120718
  13. CHLORPHENIRAMIN [Concomitant]
     Dates: start: 20121009, end: 20121009
  14. CHLORPHENIRAMIN [Concomitant]
     Dates: start: 20130130, end: 20130130
  15. CHLORPHENIRAMIN [Concomitant]
     Dates: start: 20130514, end: 20130514
  16. CHLORPHENIRAMIN [Concomitant]
     Dates: start: 20130802, end: 20130802
  17. CHLORPHENIRAMIN [Concomitant]
     Dates: start: 20131004, end: 20131004
  18. CLOPIDOGREL [Concomitant]
     Indication: CORONARY ARTERY DISEASE
     Dates: start: 20111207, end: 20111212
  19. DICLOFENAC [Concomitant]
     Indication: WOUND COMPLICATION
     Dates: start: 20121130, end: 20121130
  20. DICLOFENAC [Concomitant]
     Dates: start: 20121202, end: 20121212
  21. GENTAMYCIN//GENTAMICIN [Concomitant]
     Indication: EYELID DISORDER
     Dates: start: 20120620, end: 20120627
  22. FUROSEMIDE [Concomitant]
     Indication: PREMEDICATION
     Dates: start: 20120118, end: 20120118
  23. FUROSEMIDE [Concomitant]
     Dates: start: 20120215, end: 20120215
  24. FUROSEMIDE [Concomitant]
     Dates: start: 20120411, end: 20120411
  25. FUROSEMIDE [Concomitant]
     Dates: start: 20120530, end: 20120530
  26. FUROSEMIDE [Concomitant]
     Dates: start: 20120718, end: 20120718
  27. FUROSEMIDE [Concomitant]
     Dates: start: 20121009, end: 20121009
  28. FUROSEMIDE [Concomitant]
     Dates: start: 20130130, end: 20130130
  29. FUROSEMIDE [Concomitant]
     Dates: start: 20130514, end: 20130514
  30. FUROSEMIDE [Concomitant]
     Dates: start: 20130802, end: 20130802
  31. FUROSEMIDE [Concomitant]
     Dates: start: 20131004, end: 20131004
  32. FLUMETHOLON [Concomitant]
     Indication: CONJUNCTIVITIS
     Dates: start: 20120514, end: 20120611
  33. HYDROCORTISONE [Concomitant]
     Indication: PREMEDICATION
     Dates: start: 20120118, end: 20120118
  34. HYDROCORTISONE [Concomitant]
     Indication: ALLERGY PROPHYLAXIS
     Dates: start: 20120215, end: 20120215
  35. HYDROCORTISONE [Concomitant]
     Dates: start: 20120411, end: 20120411
  36. HYDROCORTISONE [Concomitant]
     Dates: start: 20120530, end: 20120530
  37. HYDROCORTISONE [Concomitant]
     Dates: start: 20120718, end: 20120718
  38. HYDROCORTISONE [Concomitant]
     Dates: start: 20121009, end: 20121009
  39. HYDROCORTISONE [Concomitant]
     Dates: start: 20130130, end: 20130130
  40. HYDROCORTISONE [Concomitant]
     Dates: start: 20130514, end: 20130514
  41. HYDROCORTISONE [Concomitant]
     Dates: start: 20130802, end: 20130802
  42. HYDROCORTISONE [Concomitant]
     Dates: start: 20131004, end: 20131004
  43. ISOSORBIDE MONONITRATE [Concomitant]
     Indication: PROPHYLAXIS
     Dates: start: 20111221
  44. ISOSORBIDE DINITRATE [Concomitant]
     Indication: PROPHYLAXIS
     Dates: start: 20111212, end: 20111212
  45. KAOPECTIN [Concomitant]
     Indication: GASTROENTERITIS
     Dates: start: 20121222, end: 20121226
  46. KINGMIN [Concomitant]
     Indication: DRY EYE
     Dates: start: 20120514, end: 20120611
  47. LABETALOL [Concomitant]
     Indication: HYPERTENSION
     Dates: start: 20121223, end: 20121223
  48. LOPERAMIDE [Concomitant]
     Indication: GASTROENTERITIS
     Dates: start: 20121222, end: 20121222
  49. MEBEVERINE [Concomitant]
     Indication: GASTROENTERITIS
     Dates: start: 20121223, end: 20121226
  50. MEPERIDINE [Concomitant]
     Indication: WOUND COMPLICATION
     Dates: start: 20121130, end: 20121130
  51. NEOMYCIN [Concomitant]
     Indication: WOUND
     Dates: start: 20130226, end: 20130305
  52. NITROGLYCERIN [Concomitant]
     Indication: PROPHYLAXIS
     Dates: start: 20111207
  53. NORVASC [Concomitant]
     Indication: HYPERTENSION
     Dates: start: 20111210, end: 20111212
  54. NORVASC [Concomitant]
     Dates: start: 20111221
  55. POLYTAR LIQUID [Concomitant]
     Indication: ECZEMA
     Dates: start: 20120118
  56. ROSUVASTATIN [Concomitant]
     Indication: HYPERCHOLESTEROLAEMIA
     Dates: start: 20111221
  57. URSODESOXYCHOLIC ACID [Concomitant]
     Indication: CHOLELITHIASIS
     Dates: start: 20121119, end: 20121203

REACTIONS (8)
  - Cholelithiasis [Recovered/Resolved with Sequelae]
  - Hepatitis acute [Unknown]
  - Renal failure chronic [Unknown]
  - Abdominal pain [Unknown]
  - Constipation [Unknown]
  - Gastrooesophageal reflux disease [Unknown]
  - Abdominal pain upper [Unknown]
  - Back pain [Unknown]
